FAERS Safety Report 8472977-9 (Version None)
Quarter: 2012Q2

REPORT INFORMATION
  Report Type: 
  Country: None (occurrence: None)
  Receive Date: 20120627
  Receipt Date: 20120613
  Transmission Date: 20120825
  Serious: Yes (Hospitalization, Other)
  Sender: FDA-Public Use
  Company Number: DE-FRI-1000036603

PATIENT
  Sex: Female

DRUGS (6)
  1. TEGRETOL [Concomitant]
     Dosage: 500 MG
     Route: 048
     Dates: start: 20120229, end: 20120301
  2. CITALOPRAM HYDROBROMIDE [Suspect]
     Dosage: 30 MG
     Route: 048
     Dates: end: 20120226
  3. CITALOPRAM HYDROBROMIDE [Suspect]
     Dosage: 30 MG
     Route: 048
     Dates: start: 20120228
  4. MIRTAZAPINE [Suspect]
     Dosage: 30 MG
     Route: 048
     Dates: end: 20120226
  5. MIRTAZAPINE [Suspect]
     Dosage: 30 MG
     Route: 048
     Dates: start: 20120228, end: 20120301
  6. TEGRETOL [Concomitant]
     Indication: PROPHYLAXIS
     Dosage: 600 MG
     Route: 048
     Dates: start: 20120207, end: 20120228

REACTIONS (2)
  - GRAND MAL CONVULSION [None]
  - POTENTIATING DRUG INTERACTION [None]
